FAERS Safety Report 4928244-0 (Version None)
Quarter: 2006Q1

REPORT INFORMATION
  Report Type: 
  Country: None (occurrence: None)
  Receive Date: 20060223
  Receipt Date: 20060210
  Transmission Date: 20060701
  Serious: Yes (Other)
  Sender: FDA-Public Use
  Company Number: 2005158592

PATIENT
  Age: 56 Year
  Sex: Male

DRUGS (1)
  1. VIAGRA [Suspect]
     Indication: ILL-DEFINED DISORDER
     Dosage: ORAL
     Route: 048
     Dates: start: 19980101, end: 19980101

REACTIONS (8)
  - BLINDNESS UNILATERAL [None]
  - CHROMATOPSIA [None]
  - DRUG INEFFECTIVE [None]
  - EYE HAEMORRHAGE [None]
  - HEADACHE [None]
  - OCULAR HYPERAEMIA [None]
  - VISION BLURRED [None]
  - VISUAL FIELD DEFECT [None]
